FAERS Safety Report 6944463-6 (Version None)
Quarter: 2010Q3

REPORT INFORMATION
  Report Type: 
  Country: None (occurrence: None)
  Receive Date: 20100827
  Receipt Date: 20100818
  Transmission Date: 20110219
  Serious: Yes (Death, Other)
  Sender: FDA-Public Use
  Company Number: US-PFIZER INC-2010093949

PATIENT
  Age: 25 Year
  Sex: Female
  Weight: 87.075 kg

DRUGS (3)
  1. ALPRAZOLAM [Suspect]
     Dosage: UNK
  2. OXYCODONE [Suspect]
     Dosage: UNK
  3. METHADONE [Suspect]
     Dosage: UNK

REACTIONS (3)
  - DRUG TOXICITY [None]
  - OEDEMA [None]
  - PULMONARY CONGESTION [None]
